FAERS Safety Report 11744330 (Version 1)
Quarter: 2015Q4

REPORT INFORMATION
  Report Type: Spontaneous
  Country: US (occurrence: US)
  Receive Date: 20151116
  Receipt Date: 20151116
  Transmission Date: 20160304
  Serious: Yes (Other)
  Sender: FDA-Public Use
  Company Number: US-ROCHE-1660810

PATIENT
  Age: 19 Year
  Sex: Female

DRUGS (1)
  1. XOLAIR [Suspect]
     Active Substance: OMALIZUMAB
     Indication: ASTHMA
     Dosage: LAST TIME, SHE RECEIVED A DOSE (300 MG - MONTHLY).
     Route: 065
     Dates: start: 2006

REACTIONS (3)
  - Vomiting [Unknown]
  - Abdominal pain [Recovered/Resolved]
  - Syncope [Unknown]
